FAERS Safety Report 15306365 (Version 1)
Quarter: 2018Q3

REPORT INFORMATION
  Report Type: Spontaneous
  Country: US (occurrence: US)
  Receive Date: 20180822
  Receipt Date: 20180822
  Transmission Date: 20181010
  Serious: No
  Sender: FDA-Public Use
  Company Number: US-PFIZER INC-2018336453

PATIENT
  Age: 27 Year
  Sex: Male

DRUGS (1)
  1. EUCRISA [Suspect]
     Active Substance: CRISABOROLE
     Dosage: UNK UNK, 2X/DAY; [APPLY 1 APPLICATION, MORNING AND EVENING]
     Route: 061
     Dates: start: 201711

REACTIONS (3)
  - Skin reaction [Unknown]
  - Condition aggravated [Unknown]
  - Eczema [Unknown]
